FAERS Safety Report 8228510-X (Version None)
Quarter: 2012Q1

REPORT INFORMATION
  Report Type: 
  Country: None (occurrence: None)
  Receive Date: 20120322
  Receipt Date: 20110627
  Transmission Date: 20120608
  Serious: No
  Sender: FDA-Public Use
  Company Number: US-BRISTOL-MYERS SQUIBB COMPANY-15755275

PATIENT
  Age: 68 Year
  Sex: Female

DRUGS (1)
  1. ERBITUX [Suspect]
     Indication: HEAD AND NECK CANCER
     Dosage: LAST INF ON 02MAY2011
     Route: 042
     Dates: start: 20110321

REACTIONS (3)
  - BURNING SENSATION [None]
  - CANDIDIASIS [None]
  - RASH [None]
